FAERS Safety Report 5108968-5 (Version None)
Quarter: 2006Q3

REPORT INFORMATION
  Report Type: 
  Country: None (occurrence: None)
  Receive Date: 20060920
  Receipt Date: 20060808
  Transmission Date: 20061208
  Serious: Yes (Hospitalization)
  Sender: FDA-Public Use
  Company Number: DEWYE580908AUG06

PATIENT
  Age: 70 Year
  Sex: Female

DRUGS (14)
  1. ENBREL [Suspect]
     Indication: RHEUMATOID ARTHRITIS
     Route: 058
     Dates: start: 20050207, end: 20051201
  2. ENBREL [Suspect]
     Route: 058
     Dates: start: 20060801
  3. LOCOL [Concomitant]
     Dosage: UNKNOWN
     Dates: start: 20040101
  4. PANTOPRAZOLE SODIUM [Concomitant]
     Dosage: UNKNOWN
     Dates: start: 20040101
  5. L-THYROXIN [Concomitant]
     Dosage: 50 ?G
  6. DILZEM - SLOW RELEASE [Concomitant]
     Indication: HYPERSENSITIVITY
     Dosage: 90 MG
     Dates: start: 20050101, end: 20060201
  7. PREDNISOLONE [Concomitant]
     Dosage: UNKNOWN
  8. UNAT [Concomitant]
     Dosage: 200 MG
     Dates: start: 20040101
  9. ARANESP [Concomitant]
     Dosage: UNKNOWN
     Dates: start: 20040601
  10. FERRLECIT [Concomitant]
     Dosage: UNKNOWN
     Dates: start: 20040601
  11. ACTRAPID HUMAN [Concomitant]
     Dosage: ON DEMAND
     Dates: start: 20000101
  12. INSULIN PROTAPHAN HM (GE) [Concomitant]
     Dosage: ON DEMAND
     Dates: start: 20000101
  13. ASPIRIN [Concomitant]
     Dosage: 100 MG
  14. DIOVAN [Concomitant]
     Dosage: 80 MG

REACTIONS (3)
  - HAEMATOMA [None]
  - SHUNT INFECTION [None]
  - STAPHYLOCOCCAL INFECTION [None]
